FAERS Safety Report 16967609 (Version 1)
Quarter: 2019Q4

REPORT INFORMATION
  Report Type: Spontaneous
  Country: PT (occurrence: PT)
  Receive Date: 20191028
  Receipt Date: 20191028
  Transmission Date: 20200122
  Serious: Yes (Hospitalization)
  Sender: FDA-Public Use
  Company Number: PT-MYLANLABS-2019M1101382

PATIENT
  Age: 17 Year
  Sex: Female

DRUGS (1)
  1. ALPRAZOLAM. [Suspect]
     Active Substance: ALPRAZOLAM
     Indication: ANXIETY
     Dosage: 0.25 MG, UNK
     Route: 065

REACTIONS (6)
  - Dyspnoea [Unknown]
  - Vomiting [Unknown]
  - Condition aggravated [Unknown]
  - Pneumothorax spontaneous [Unknown]
  - Cough [Unknown]
  - Chest pain [Unknown]
